FAERS Safety Report 20703521 (Version 4)
Quarter: 2022Q2

REPORT INFORMATION
  Report Type: Report from Study
  Country: US (occurrence: US)
  Receive Date: 20220413
  Receipt Date: 20220520
  Transmission Date: 20220721
  Serious: Yes (Hospitalization)
  Sender: FDA-Public Use
  Company Number: US-INSMED, INC.-2022-00697-US

PATIENT
  Age: 66 Year
  Sex: Male

DRUGS (3)
  1. ARIKAYCE [Suspect]
     Active Substance: AMIKACIN
     Indication: Mycobacterium avium complex infection
     Dosage: 590 MILLIGRAM, QD
     Route: 055
     Dates: start: 20220310, end: 20220325
  2. ARIKAYCE [Suspect]
     Active Substance: AMIKACIN
     Dosage: 590 MILLIGRAM, QD
     Route: 055
     Dates: start: 202204, end: 20220425
  3. ARIKAYCE [Suspect]
     Active Substance: AMIKACIN
     Dosage: 590 MILLIGRAM
     Route: 055
     Dates: start: 2022

REACTIONS (6)
  - Gallbladder disorder [Unknown]
  - Intestinal obstruction [Recovered/Resolved]
  - Sputum increased [Not Recovered/Not Resolved]
  - Cough [Not Recovered/Not Resolved]
  - Treatment noncompliance [Unknown]
  - Product use issue [Unknown]

NARRATIVE: CASE EVENT DATE: 20220301
